FAERS Safety Report 7548203-1 (Version None)
Quarter: 2011Q2

REPORT INFORMATION
  Report Type: 
  Country: None (occurrence: None)
  Receive Date: 20110615
  Receipt Date: 20110606
  Transmission Date: 20111010
  Serious: Yes (Hospitalization, Other)
  Sender: FDA-Public Use
  Company Number: US-BAYER-201038325NA

PATIENT
  Age: 26 Year
  Sex: Female
  Weight: 48 kg

DRUGS (6)
  1. VALTREX [Concomitant]
     Dosage: UNK
  2. ORAL CONTRACEPTIVE NOS [Concomitant]
  3. YASMIN [Suspect]
     Indication: CONTRACEPTION
     Dosage: UNK UNK, QD
     Route: 048
     Dates: start: 20050901, end: 20080101
  4. DROSPIRENONE AND ETHINYL ESTRADIOL [Suspect]
     Indication: CONTRACEPTION
     Dosage: UNK
     Dates: start: 20050901, end: 20080101
  5. LEVORA 0.15/30-21 [Concomitant]
     Dosage: UNK
     Dates: start: 20080101, end: 20090101
  6. YAZ [Suspect]
     Indication: CONTRACEPTION
     Dosage: UNK UNK, QD
     Route: 048
     Dates: start: 20050901, end: 20080101

REACTIONS (5)
  - CHOLECYSTECTOMY [None]
  - CHOLELITHIASIS [None]
  - GALLBLADDER PAIN [None]
  - CHOLECYSTITIS ACUTE [None]
  - GALLBLADDER DISORDER [None]
